FAERS Safety Report 11202435 (Version 2)
Quarter: 2015Q3

REPORT INFORMATION
  Report Type: Spontaneous
  Country: US (occurrence: US)
  Receive Date: 20150619
  Receipt Date: 20150720
  Transmission Date: 20151125
  Serious: No
  Sender: FDA-Public Use
  Company Number: US-009507513-1506USA001942

PATIENT
  Age: 22 Year
  Sex: Female
  Weight: 68.27 kg

DRUGS (1)
  1. NEXPLANON [Suspect]
     Active Substance: ETONOGESTREL
     Indication: PRODUCT USED FOR UNKNOWN INDICATION
     Dosage: 1 IMPLANT EVERY 3 YEARS
     Route: 059
     Dates: start: 201411

REACTIONS (4)
  - No adverse event [Unknown]
  - Device breakage [Unknown]
  - Device kink [Unknown]
  - Medical device complication [Unknown]

NARRATIVE: CASE EVENT DATE: 20150526
